FAERS Safety Report 9203239 (Version 1)
Quarter: 2013Q1

REPORT INFORMATION
  Report Type: Spontaneous
  Country: None (occurrence: None)
  Receive Date: 20130328
  Receipt Date: 20130328
  Transmission Date: 20140127
  Serious: Yes (Hospitalization)
  Sender: FDA-Public Use
  Company Number: SYM-2013-02055

PATIENT
  Age: 39 Year
  Sex: Male

DRUGS (1)
  1. ZYBAN [Suspect]
     Indication: SMOKING CESSATION THERAPY
     Route: 048
     Dates: start: 20121126, end: 20121210

REACTIONS (4)
  - Hypersensitivity [None]
  - Chest pain [None]
  - Oedema peripheral [None]
  - Chest discomfort [None]
